FAERS Safety Report 4911784-8 (Version None)
Quarter: 2006Q1

REPORT INFORMATION
  Report Type: 
  Country: None (occurrence: None)
  Receive Date: 20060213
  Receipt Date: 20060213
  Transmission Date: 20060701
  Serious: Yes (Hospitalization)
  Sender: FDA-Public Use
  Company Number: None

PATIENT
  Age: 69 Year
  Sex: Male
  Weight: 110.6777 kg

DRUGS (4)
  1. FLEET ACCU-PREP [Suspect]
     Indication: PREOPERATIVE CARE
     Dosage: 45 ML; Q12H; PO
     Route: 048
     Dates: start: 20040812, end: 20040813
  2. VIOXX [Concomitant]
  3. IBUPROFEN [Concomitant]
  4. CORTICOSTEROID [Concomitant]

REACTIONS (2)
  - GASTROINTESTINAL TRACT ADENOMA [None]
  - INTESTINAL POLYP [None]
